FAERS Safety Report 16559530 (Version 2)
Quarter: 2019Q3

REPORT INFORMATION
  Report Type: Spontaneous
  Country: US (occurrence: US)
  Receive Date: 20190711
  Receipt Date: 20190725
  Transmission Date: 20191004
  Serious: Yes (Other)
  Sender: FDA-Public Use
  Company Number: US-AXELLIA-002542

PATIENT
  Age: 59 Year
  Sex: Male
  Weight: 118 kg

DRUGS (3)
  1. VANCOMYCIN [Suspect]
     Active Substance: VANCOMYCIN
     Indication: BACTERAEMIA
     Dosage: SERUM TROUGH OF 15 TO 20 MG/LITER FOR 6 WEEKS
     Route: 042
  2. DAPTOMYCIN. [Suspect]
     Active Substance: DAPTOMYCIN
     Indication: BACTERAEMIA
     Route: 042
  3. CLINDAMYCIN. [Suspect]
     Active Substance: CLINDAMYCIN
     Indication: BACTERAEMIA
     Route: 042

REACTIONS (2)
  - Eosinophilic pneumonia [Unknown]
  - Acute kidney injury [Unknown]
